FAERS Safety Report 20871632 (Version 1)
Quarter: 2022Q2

REPORT INFORMATION
  Report Type: Report from Study
  Country: KR (occurrence: KR)
  Receive Date: 20220525
  Receipt Date: 20220525
  Transmission Date: 20220721
  Serious: Yes (Hospitalization, Other)
  Sender: FDA-Public Use
  Company Number: KR-TAKEDA-2022TUS033477

PATIENT
  Age: 44 Year
  Sex: Female
  Weight: 56 kg

DRUGS (26)
  1. VEDOLIZUMAB [Suspect]
     Active Substance: VEDOLIZUMAB
     Indication: Colitis ulcerative
     Dosage: 300 MILLIGRAM
     Route: 042
     Dates: start: 20211220
  2. VEDOLIZUMAB [Suspect]
     Active Substance: VEDOLIZUMAB
     Dosage: 300 MILLIGRAM
     Route: 042
     Dates: start: 20220103
  3. VEDOLIZUMAB [Suspect]
     Active Substance: VEDOLIZUMAB
     Dosage: 300 MILLIGRAM
     Route: 042
     Dates: start: 20220203
  4. VEDOLIZUMAB [Suspect]
     Active Substance: VEDOLIZUMAB
     Dosage: 300 MILLIGRAM
     Route: 042
     Dates: start: 20220330
  5. DICAMAX [Concomitant]
     Indication: Vitamin supplementation
     Dosage: UNK UNK, QD
     Route: 048
     Dates: start: 20190718
  6. FEROBA YOU [Concomitant]
     Dosage: UNK UNK, QD
     Route: 048
     Dates: start: 20220112, end: 20220202
  7. VITAMIN B COMPLEX [Concomitant]
     Active Substance: CYANOCOBALAMIN\DEXPANTHENOL\NIACINAMIDE\PYRIDOXINE HYDROCHLORIDE\RIBOFLAVIN 5^-PHOSPHATE SODIUM\THIA
     Indication: Vitamin supplementation
     Dosage: UNK UNK, QD
     Route: 048
     Dates: start: 20200917, end: 20211229
  8. ENCOVER [Concomitant]
     Indication: Adverse event
     Dosage: 200 MILLILITER, QD
     Route: 048
     Dates: start: 20211229
  9. ENCOVER [Concomitant]
     Dosage: 200 MILLILITER, TID
     Route: 048
     Dates: start: 20211230, end: 20220103
  10. NUTRIFLEX LIPID PERI [Concomitant]
     Indication: Adverse event
     Dosage: 1250 MILLILITER, QD
     Route: 042
     Dates: start: 20211229, end: 20211229
  11. CIPLOXCIN [Concomitant]
     Indication: Adverse event
     Dosage: 400 MILLIGRAM, QD
     Route: 042
     Dates: start: 20211229, end: 20211229
  12. CIPLOXCIN [Concomitant]
     Dosage: 400 MILLIGRAM, TID
     Route: 042
     Dates: start: 20211230, end: 20211230
  13. CIPLOXCIN [Concomitant]
     Dosage: 400 MILLIGRAM, BID
     Route: 042
     Dates: start: 20211231, end: 20220103
  14. Disolrin [Concomitant]
     Indication: Adverse event
     Dosage: 40 MILLIGRAM, QD
     Route: 042
     Dates: start: 20211229, end: 20220103
  15. PHAZYME COMPLEX [Concomitant]
     Indication: Adverse event
     Dosage: 95 MILLIGRAM, QD
     Route: 048
     Dates: start: 20220101, end: 20220101
  16. MECKOOL [Concomitant]
     Indication: Adverse event
     Dosage: 10 MILLIGRAM, QD
     Route: 042
     Dates: start: 20220101, end: 20220101
  17. VALCYTE [Concomitant]
     Active Substance: VALGANCICLOVIR HYDROCHLORIDE
     Indication: Adverse event
     Dosage: 900 MILLIGRAM, TID
     Route: 048
     Dates: start: 20220111, end: 20220202
  18. LOPERAMIDE [Concomitant]
     Active Substance: LOPERAMIDE
     Indication: Antidiarrhoeal supportive care
     Dosage: 2 MILLIGRAM, TID
     Route: 048
     Dates: start: 20220111, end: 20220202
  19. TIROPRAMIDE [Concomitant]
     Active Substance: TIROPRAMIDE
     Dosage: 100 MILLIGRAM, TID
     Route: 048
     Dates: start: 20211220, end: 20220202
  20. PENTASA [Concomitant]
     Active Substance: MESALAMINE
     Dosage: 1 GRAM, TID
     Route: 048
     Dates: start: 20180223, end: 20220329
  21. PENTASA [Concomitant]
     Active Substance: MESALAMINE
     Dosage: UNK UNK, BID
     Route: 048
     Dates: start: 20220330
  22. PENTASA [Concomitant]
     Active Substance: MESALAMINE
     Dosage: UNK UNK, QD
     Route: 054
     Dates: start: 20220330
  23. ASACOL [Concomitant]
     Active Substance: MESALAMINE
     Dosage: 100 MILLILITER, QD
     Route: 054
     Dates: start: 20211231, end: 20220111
  24. PREDNISOLONE [Concomitant]
     Active Substance: PREDNISOLONE
     Dosage: 30 MILLIGRAM, QD
     Route: 048
     Dates: start: 20220104, end: 20220110
  25. PREDNISOLONE [Concomitant]
     Active Substance: PREDNISOLONE
     Dosage: 20 MILLIGRAM, QD
     Route: 048
     Dates: start: 20220111, end: 20220124
  26. PREDNISOLONE [Concomitant]
     Active Substance: PREDNISOLONE
     Dosage: 10 MILLIGRAM, QD
     Route: 048
     Dates: start: 20220125, end: 20220202

REACTIONS (1)
  - Haematochezia [Recovered/Resolved]

NARRATIVE: CASE EVENT DATE: 20211229
